FAERS Safety Report 4816146-X (Version None)
Quarter: 2005Q4

REPORT INFORMATION
  Report Type: 
  Country: None (occurrence: None)
  Receive Date: 20051026
  Receipt Date: 20051017
  Transmission Date: 20060501
  Serious: Yes (Death, Other)
  Sender: FDA-Public Use
  Company Number: MC200500950

PATIENT
  Age: 62 Year
  Sex: Female

DRUGS (4)
  1. BIVALIRUDIN (BIVALIRUDIN) INJECTION, 250MG [Suspect]
     Dosage: INTRAVENOUS
     Route: 042
  2. INTEGRILIN (EPTIFIBATIDE) 20 + 70MG [Suspect]
     Dosage: SEE IMAGE
     Route: 042
  3. PLAVIX [Concomitant]
  4. ASPIRIN [Concomitant]

REACTIONS (6)
  - CARDIO-RESPIRATORY ARREST [None]
  - DYSPNOEA [None]
  - HAEMATEMESIS [None]
  - HAEMOTHORAX [None]
  - HYPOTENSION [None]
  - NAUSEA [None]
